FAERS Safety Report 9580047 (Version 2)
Quarter: 2013Q4

REPORT INFORMATION
  Report Type: Spontaneous
  Country: JP (occurrence: None)
  Receive Date: 20130930
  Receipt Date: 20131018
  Transmission Date: 20140711
  Serious: Yes (Other)
  Sender: FDA-Public Use
  Company Number: 2013P1019481

PATIENT
  Age: 38 Year
  Sex: Female

DRUGS (2)
  1. OXYTOCIN [Suspect]
     Indication: CAESAREAN SECTION
     Route: 030
  2. BUPIVACAINE [Concomitant]

REACTIONS (6)
  - Myocardial ischaemia [None]
  - Flushing [None]
  - Blood pressure decreased [None]
  - Heart rate increased [None]
  - Electrocardiogram ST segment depression [None]
  - Procedural complication [None]
